FAERS Safety Report 24450262 (Version 4)
Quarter: 2024Q4

REPORT INFORMATION
  Report Type: Spontaneous
  Country: US (occurrence: US)
  Receive Date: 20241017
  Receipt Date: 20241226
  Transmission Date: 20250114
  Serious: No
  Sender: PFIZER
  Company Number: US-PFIZER INC-202400271844

PATIENT
  Age: 10 Year
  Sex: Male
  Weight: 29.94 kg

DRUGS (3)
  1. GENOTROPIN [Suspect]
     Active Substance: SOMATROPIN
     Indication: Growth hormone deficiency
     Dosage: 0.8 MG, DAILY (NIGHTLY)
     Dates: start: 202404
  2. MOTRIN [Concomitant]
     Active Substance: IBUPROFEN
     Indication: Growing pains
     Dosage: ONCE A DAY, AS NEEDED
  3. CETIRIZINE [Concomitant]
     Active Substance: CETIRIZINE HYDROCHLORIDE
     Indication: Hypersensitivity
     Dosage: 10 MG, 1X/DAY

REACTIONS (3)
  - Device use error [Unknown]
  - Device breakage [Unknown]
  - Device leakage [Unknown]
